FAERS Safety Report 25376046 (Version 1)
Quarter: 2025Q2

REPORT INFORMATION
  Report Type: Spontaneous
  Country: JP (occurrence: JP)
  Receive Date: 20250529
  Receipt Date: 20250529
  Transmission Date: 20250717
  Serious: Yes (Other)
  Sender: EISAI
  Company Number: JP-Eisai-202502409_LEN-RCC_P_1

PATIENT
  Age: 71 Year
  Sex: Female

DRUGS (4)
  1. LENVATINIB [Suspect]
     Active Substance: LENVATINIB
     Indication: Renal cell carcinoma
  2. LENVATINIB [Suspect]
     Active Substance: LENVATINIB
  3. LENVATINIB [Suspect]
     Active Substance: LENVATINIB
  4. KEYTRUDA [Concomitant]
     Active Substance: PEMBROLIZUMAB
     Indication: Renal cell carcinoma
     Route: 042

REACTIONS (4)
  - Epilepsy [Unknown]
  - Hypertension [Unknown]
  - Immune-mediated hypothyroidism [Unknown]
  - Diarrhoea [Unknown]
